FAERS Safety Report 8666321 (Version 2)
Quarter: 2012Q4

REPORT INFORMATION
  Report Type: 
  Country: IT (occurrence: IT)
  Receive Date: 20120716
  Receipt Date: 20121122
  Transmission Date: 20130627
  Serious: Yes (Hospitalization, Other)
  Sender: FDA-Public Use
  Company Number: PHHO2012IT010364

PATIENT
  Sex: Female
  Weight: 60 kg

DRUGS (5)
  1. AFINITOR [Suspect]
     Indication: ASTROCYTOMA, LOW GRADE
     Dosage: 5 mg, UNK
     Route: 048
     Dates: start: 20111108, end: 20111129
  2. AFINITOR [Suspect]
     Dosage: 7.5 mg, UNK
     Route: 048
     Dates: start: 20111130, end: 20111219
  3. AFINITOR [Suspect]
     Dosage: 10 mg, UNK
     Route: 048
     Dates: start: 20111220, end: 20120711
  4. VALPROIC ACID [Concomitant]
     Indication: EPILEPSY
     Dosage: 500 mg+800 mg
  5. CARBAMAZEPINE [Concomitant]
     Indication: EPILEPSY
     Dosage: 400 mg, BID
     Route: 048

REACTIONS (1)
  - Ovarian cyst [Recovered/Resolved]
